FAERS Safety Report 9736798 (Version 2)
Quarter: 2014Q4

REPORT INFORMATION
  Report Type: Report from Study
  Country: US (occurrence: US)
  Receive Date: 20131206
  Receipt Date: 20141010
  Transmission Date: 20150529
  Serious: Yes (Other)
  Sender: FDA-Public Use
  Company Number: US-BIOGENIDEC-2013BI088904

PATIENT
  Age: 48 Year
  Sex: Female
  Weight: 61 kg

DRUGS (10)
  1. PRENATAL [Concomitant]
     Active Substance: VITAMINS
  2. TECFIDERA [Suspect]
     Active Substance: DIMETHYL FUMARATE
     Indication: MULTIPLE SCLEROSIS
     Route: 048
  3. ZOFRAN [Concomitant]
     Active Substance: ONDANSETRON HYDROCHLORIDE
  4. AMITRIPTYLINE [Concomitant]
     Active Substance: AMITRIPTYLINE
  5. MOTRIN IB [Concomitant]
     Active Substance: IBUPROFEN
  6. BUTAL/APAP [Concomitant]
  7. FISH OIL [Concomitant]
     Active Substance: FISH OIL
  8. TECFIDERA [Suspect]
     Active Substance: DIMETHYL FUMARATE
     Indication: MULTIPLE SCLEROSIS
     Route: 048
     Dates: start: 20130819, end: 20130919
  9. PREMARIN [Concomitant]
     Active Substance: ESTROGENS, CONJUGATED
  10. TRAMADOL HCL ER [Concomitant]

REACTIONS (9)
  - Muscle spasms [Unknown]
  - Vomiting [Recovered/Resolved]
  - Diarrhoea [Unknown]
  - Hepatic failure [Not Recovered/Not Resolved]
  - Weight decreased [Unknown]
  - Abdominal pain upper [Unknown]
  - Central nervous system lesion [Not Recovered/Not Resolved]
  - Hepatic enzyme increased [Recovered/Resolved]
  - Skin discolouration [Unknown]

NARRATIVE: CASE EVENT DATE: 201308
